FAERS Safety Report 9230872 (Version 2)
Quarter: 2013Q2

REPORT INFORMATION
  Report Type: Spontaneous
  Country: IT (occurrence: IT)
  Receive Date: 20130415
  Receipt Date: 20130508
  Transmission Date: 20140414
  Serious: Yes (Hospitalization)
  Sender: FDA-Public Use
  Company Number: IT-ROCHE-1213187

PATIENT
  Age: 56 Year
  Sex: Male

DRUGS (4)
  1. RIVOTRIL [Suspect]
     Indication: INTENTIONAL SELF-INJURY
     Route: 048
     Dates: start: 20130404, end: 20130404
  2. MIRTAZAPINE [Suspect]
     Indication: INTENTIONAL SELF-INJURY
     Route: 048
     Dates: start: 20130404, end: 20130404
  3. LAROXYL [Concomitant]
     Route: 048
  4. MESALAZINE [Concomitant]
     Indication: CROHN^S DISEASE

REACTIONS (3)
  - Intentional self-injury [Recovered/Resolved]
  - Sopor [Recovered/Resolved]
  - Drug abuse [Unknown]
